FAERS Safety Report 4762009-8 (Version None)
Quarter: 2005Q3

REPORT INFORMATION
  Report Type: 
  Country: None (occurrence: None)
  Receive Date: 20050831
  Receipt Date: 20050502
  Transmission Date: 20060218
  Serious: No
  Sender: FDA-Public Use
  Company Number: PHEH2005US05043

PATIENT
  Age: 60 Year
  Sex: Female

DRUGS (4)
  1. ENABLEX (DARIFENACIN HYDROBROMIDE) TABLET, 15 MG [Suspect]
     Indication: HYPERTONIC BLADDER
     Dosage: 15 MG QD
     Dates: start: 20050428, end: 20050501
  2. ELMIRON [Suspect]
     Indication: HYPERTONIC BLADDER
     Dosage: 15 MG QD
     Dates: start: 20050428, end: 20050501
  3. ELMIRON [Concomitant]
  4. WARFARIN SODIUM [Concomitant]

REACTIONS (4)
  - ASTHENIA [None]
  - DIZZINESS POSTURAL [None]
  - DRY MOUTH [None]
  - INSOMNIA [None]
